FAERS Safety Report 23776104 (Version 1)
Quarter: 2024Q2

REPORT INFORMATION
  Report Type: Spontaneous
  Country: US (occurrence: US)
  Receive Date: 20240424
  Receipt Date: 20240424
  Transmission Date: 20240715
  Serious: No
  Sender: FDA-Public Use
  Company Number: US-ALVOGEN-2023092736

PATIENT
  Sex: Female

DRUGS (1)
  1. ESTRADIOL [Suspect]
     Active Substance: ESTRADIOL
     Indication: Atrophic vulvovaginitis
     Dosage: 0.01%, EXPIRATION: UU-DEC-2025?DOSAGE: 1 G/WEEK AT BEDTIME

REACTIONS (2)
  - Urinary tract infection [Recovered/Resolved]
  - Wrong technique in device usage process [Unknown]
